FAERS Safety Report 21929320 (Version 2)
Quarter: 2025Q3

REPORT INFORMATION
  Report Type: Spontaneous
  Country: EU (occurrence: EU)
  Receive Date: 20230131
  Receipt Date: 20250721
  Transmission Date: 20251021
  Serious: Yes (Other)
  Sender: AUROBINDO
  Company Number: EU-SUN PHARMACEUTICAL INDUSTRIES LTD-2023R1-373260

PATIENT
  Age: 93 Year
  Sex: Female

DRUGS (1)
  1. HYDROCHLOROTHIAZIDE\LOSARTAN [Suspect]
     Active Substance: HYDROCHLOROTHIAZIDE\LOSARTAN
     Indication: Product used for unknown indication
     Dosage: UNK UNK, ONCE A DAY (100 MG/25 MG/DAILY)
     Route: 065

REACTIONS (1)
  - Gouty tophus [Unknown]
